FAERS Safety Report 17894800 (Version 3)
Quarter: 2020Q3

REPORT INFORMATION
  Report Type: Report from Study
  Country: CO (occurrence: CO)
  Receive Date: 20200615
  Receipt Date: 20200731
  Transmission Date: 20201103
  Serious: Yes (Hospitalization, Other)
  Sender: FDA-Public Use
  Company Number: CO-ASTELLAS-2020US018012

PATIENT
  Age: 51 Year
  Sex: Female
  Weight: 65 kg

DRUGS (5)
  1. MAGNESIUM [Concomitant]
     Active Substance: MAGNESIUM
     Indication: PRODUCT USED FOR UNKNOWN INDICATION
     Dosage: UNK UNK, TWICE DAILY
     Route: 048
  2. TACROLIMUS. [Suspect]
     Active Substance: TACROLIMUS
     Indication: LIVER TRANSPLANT
     Dosage: 6 MG, ONCE DAILY (5MG 1 CAPSULE AND 1 CAPSULE OF 1 MG)
     Route: 048
     Dates: start: 20190215
  3. PREDNISOLONE. [Concomitant]
     Active Substance: PREDNISOLONE
     Indication: LIVER TRANSPLANT
     Route: 048
  4. CALCIUM + VITAMIN D [CALCIUM CARBONATE;COLECALCIFEROL] [Concomitant]
     Active Substance: CALCIUM CARBONATE\CHOLECALCIFEROL
     Indication: PRODUCT USED FOR UNKNOWN INDICATION
     Dosage: 600+400, ONCE DAILY
     Route: 048
  5. PREDNISOLONE. [Concomitant]
     Active Substance: PREDNISOLONE
     Indication: LIVER TRANSPLANT REJECTION

REACTIONS (8)
  - Insomnia [Recovered/Resolved]
  - Feeling hot [Recovered/Resolved]
  - Feeling hot [Recovering/Resolving]
  - Liver transplant rejection [Recovering/Resolving]
  - Discomfort [Recovered/Resolved]
  - Product use in unapproved indication [Unknown]
  - Secondary immunodeficiency [Recovered/Resolved]
  - Herpes zoster reactivation [Recovering/Resolving]

NARRATIVE: CASE EVENT DATE: 20190215
